FAERS Safety Report 6712105-0 (Version None)
Quarter: 2010Q2

REPORT INFORMATION
  Report Type: 
  Country: None (occurrence: None)
  Receive Date: 20100505
  Receipt Date: 20100503
  Transmission Date: 20101027
  Serious: Yes (Death, Life-Threatening)
  Sender: FDA-Public Use
  Company Number: PK-ROXANE LABORATORIES, INC.-2010-RO-00508RO

PATIENT
  Age: 32 Year
  Sex: Male

DRUGS (6)
  1. AZATHIOPRINE [Suspect]
     Indication: IMMUNOSUPPRESSION
     Dosage: 300 MG
     Route: 048
     Dates: start: 20000101, end: 20080101
  2. CYCLOPHOSPHAMIDE [Suspect]
     Indication: LYMPHOPROLIFERATIVE DISORDER
     Dosage: 1200 MG
     Route: 042
     Dates: start: 20080418, end: 20081001
  3. PREDNISOLONE [Suspect]
     Indication: IMMUNOSUPPRESSION
     Dosage: 10 MG
     Route: 048
     Dates: start: 20000101, end: 20080101
  4. DOXORUBICIN HCL [Suspect]
     Indication: LYMPHOPROLIFERATIVE DISORDER
     Dosage: 80 MG
     Route: 042
     Dates: start: 20080414, end: 20081001
  5. VINCRISTINE [Suspect]
     Indication: LYMPHOPROLIFERATIVE DISORDER
     Dosage: 2 MG
     Route: 042
     Dates: start: 20080418, end: 20081001
  6. METHYLPREDNISOLONE [Suspect]
     Indication: LYMPHOPROLIFERATIVE DISORDER
     Dates: start: 20080418, end: 20081001

REACTIONS (3)
  - LEUKOPENIA [None]
  - LYMPHOPROLIFERATIVE DISORDER [None]
  - SEPSIS [None]
